FAERS Safety Report 7413334-3 (Version None)
Quarter: 2011Q2

REPORT INFORMATION
  Report Type: 
  Country: None (occurrence: None)
  Receive Date: 20110413
  Receipt Date: 20100924
  Transmission Date: 20111010
  Serious: No
  Sender: FDA-Public Use
  Company Number: US-ASTRAZENECA-2010SE45421

PATIENT
  Age: 45 Year
  Sex: Female

DRUGS (13)
  1. ATIVAN [Concomitant]
     Route: 048
  2. GLUCOTROL [Concomitant]
     Route: 048
  3. QUESTRAN LIGHT [Concomitant]
     Route: 048
  4. NEURONTIN [Concomitant]
     Route: 048
  5. LORTAB [Concomitant]
     Indication: PAIN
     Dosage: 5-500 MG PER TABLET, ONE TAB EVERY 6 HOURS AS NEEDED
     Route: 048
  6. TENORMIN [Suspect]
     Route: 048
  7. PRILOSEC [Suspect]
     Route: 048
  8. SEROQUEL [Suspect]
     Route: 048
  9. ATIVAN [Concomitant]
     Route: 048
  10. GLUCOPHAGE [Concomitant]
     Route: 048
  11. SEROQUEL [Suspect]
     Route: 048
  12. PROZAC [Concomitant]
     Route: 048
  13. DIOVAN HCT [Concomitant]
     Dosage: 320- 25 MG PER TABLET, ONE TABLET DAILY
     Route: 048

REACTIONS (2)
  - PAIN IN EXTREMITY [None]
  - DIABETES MELLITUS [None]
